FAERS Safety Report 5082599-8 (Version None)
Quarter: 2006Q3

REPORT INFORMATION
  Report Type: 
  Country: None (occurrence: None)
  Receive Date: 20060817
  Receipt Date: 20060807
  Transmission Date: 20061208
  Serious: Yes (Death)
  Sender: FDA-Public Use
  Company Number: US-SANOFI-SYNTHELABO-A03200605013

PATIENT
  Sex: Female
  Weight: 40.82 kg

DRUGS (6)
  1. LIPITOR [Concomitant]
     Route: 048
     Dates: start: 20030101
  2. PLAVIX [Suspect]
     Indication: CEREBROVASCULAR ACCIDENT
     Route: 048
     Dates: start: 20030101
  3. MULTI-VITAMIN [Concomitant]
     Route: 048
  4. FOLIC ACID [Concomitant]
     Route: 048
     Dates: start: 20040101
  5. FOSAMAX [Concomitant]
     Route: 048
     Dates: start: 20040101
  6. ADVAIR DISKUS 100/50 [Concomitant]
     Route: 055
     Dates: start: 20050101

REACTIONS (1)
  - PNEUMONIA [None]
